FAERS Safety Report 7596811-4 (Version None)
Quarter: 2011Q3

REPORT INFORMATION
  Report Type: 
  Country: None (occurrence: None)
  Receive Date: 20110708
  Receipt Date: 20110627
  Transmission Date: 20111222
  Serious: Yes (Other)
  Sender: FDA-Public Use
  Company Number: US-PERRIGO-11US005320

PATIENT
  Sex: Male
  Weight: 99.773 kg

DRUGS (2)
  1. OXYMETAZOLINE HCL [Suspect]
     Indication: MALAISE
  2. OXYMETAZOLINE HCL [Suspect]
     Indication: NASAL CONGESTION
     Dosage: 2 SPRAYS, ONCE
     Route: 045
     Dates: start: 20080403, end: 20080403

REACTIONS (10)
  - HALLUCINATION [None]
  - BLOOD POTASSIUM DECREASED [None]
  - ABNORMAL BEHAVIOUR [None]
  - TREMOR [None]
  - CRYING [None]
  - INSOMNIA [None]
  - HYPERHIDROSIS [None]
  - AMNESIA [None]
  - HEART RATE INCREASED [None]
  - STARING [None]
